FAERS Safety Report 5118127-8 (Version None)
Quarter: 2006Q4

REPORT INFORMATION
  Report Type: 
  Country: None (occurrence: None)
  Receive Date: 20061002
  Receipt Date: 20060721
  Transmission Date: 20070319
  Serious: Yes (Life-Threatening, Hospitalization)
  Sender: FDA-Public Use
  Company Number: PHEH2006US09381

PATIENT
  Age: 74 Year
  Sex: Female
  Weight: 51.247 kg

DRUGS (12)
  1. ZOMETA [Suspect]
     Indication: METASTASES TO BONE
     Dosage: 4MG ONCE
     Dates: start: 20060717, end: 20060717
  2. LANOXIN [Concomitant]
     Dosage: 0.25 UNK, QD
  3. ATACAND [Concomitant]
     Dosage: 32 MG, QD
     Route: 048
  4. HYDROCHLOROTHIAZDE TAB [Concomitant]
     Dosage: 25 MG, QD
     Route: 048
  5. NITROFURANTOIN [Concomitant]
     Dosage: 100 G, QD
     Route: 048
  6. ZOLOFT [Concomitant]
     Dosage: 50 MG, QD
     Route: 048
  7. LYRICA [Concomitant]
  8. ASPIRIN [Concomitant]
     Indication: PAIN
  9. MULTIVIT [Concomitant]
  10. CALTRATE [Concomitant]
  11. NORCO [Concomitant]
  12. TARCEVA [Concomitant]
     Indication: LUNG NEOPLASM MALIGNANT
     Dosage: 1 DOSE
     Route: 048
     Dates: start: 20060717, end: 20060717

REACTIONS (4)
  - CARCINOEMBRYONIC ANTIGEN INCREASED [None]
  - DELIRIUM [None]
  - FALL [None]
  - PYREXIA [None]
